FAERS Safety Report 6019949-1 (Version None)
Quarter: 2008Q4

REPORT INFORMATION
  Report Type: 
  Country: None (occurrence: None)
  Receive Date: 20081223
  Receipt Date: 20081211
  Transmission Date: 20090506
  Serious: Yes (Hospitalization)
  Sender: FDA-Public Use
  Company Number: 234568J08USA

PATIENT
  Age: 44 Year
  Sex: Male

DRUGS (6)
  1. REBIF [Suspect]
     Indication: MULTIPLE SCLEROSIS
     Dosage: 44 MCG, 3 IN 1 WEEKS, SUBCUTANEOUS
     Route: 058
     Dates: start: 20020702
  2. PROVIGIL [Concomitant]
  3. PRAVACHOL [Concomitant]
  4. LEXAPRO [Concomitant]
  5. NADOLOL [Concomitant]
  6. METHYLPHENIDATE HCL [Concomitant]

REACTIONS (3)
  - HAEMATURIA [None]
  - NEPHROLITHIASIS [None]
  - URINARY TRACT INFECTION [None]
